FAERS Safety Report 15697860 (Version 3)
Quarter: 2019Q1

REPORT INFORMATION
  Report Type: Spontaneous
  Country: US (occurrence: US)
  Receive Date: 20181207
  Receipt Date: 20190129
  Transmission Date: 20190417
  Serious: No
  Sender: FDA-Public Use
  Company Number: US-PFIZER INC-2018499557

PATIENT
  Age: 66 Year
  Sex: Female

DRUGS (1)
  1. LATANOPROST. [Suspect]
     Active Substance: LATANOPROST
     Indication: OPEN ANGLE GLAUCOMA
     Dosage: UNK
     Dates: start: 2012

REACTIONS (1)
  - Heart rate decreased [Unknown]
